FAERS Safety Report 4942060-5 (Version None)
Quarter: 2006Q1

REPORT INFORMATION
  Report Type: 
  Country: None (occurrence: None)
  Receive Date: 20060313
  Receipt Date: 20050511
  Transmission Date: 20060701
  Serious: No
  Sender: FDA-Public Use
  Company Number: US-GLAXOSMITHKLINE-A0558089A

PATIENT
  Age: 55 Year

DRUGS (1)
  1. NICORETTE (ORANGE) [Suspect]
     Dates: start: 20050501, end: 20050510

REACTIONS (2)
  - LOCAL SWELLING [None]
  - OEDEMA MOUTH [None]
